FAERS Safety Report 15852610 (Version 1)
Quarter: 2019Q1

REPORT INFORMATION
  Report Type: Spontaneous
  Country: GB (occurrence: GB)
  Receive Date: 20190122
  Receipt Date: 20190122
  Transmission Date: 20190417
  Serious: Yes (Death, Other)
  Sender: FDA-Public Use
  Company Number: GB-BAYER-2018-201114

PATIENT
  Age: 37 Year
  Sex: Male

DRUGS (4)
  1. RIFINAH [Suspect]
     Active Substance: ISONIAZID\RIFAMPIN
  2. MOXIFLOXACIN ORAL [Suspect]
     Active Substance: MOXIFLOXACIN
     Indication: TUBERCULOSIS OF CENTRAL NERVOUS SYSTEM
  3. PYRAZINAMIDE. [Suspect]
     Active Substance: PYRAZINAMIDE
  4. DEXAMETHASONE. [Suspect]
     Active Substance: DEXAMETHASONE

REACTIONS (6)
  - Drug resistance [None]
  - Product use in unapproved indication [None]
  - Coma scale abnormal [Unknown]
  - Immune reconstitution inflammatory syndrome [Unknown]
  - Cardiac arrest [Fatal]
  - Off label use [None]
